FAERS Safety Report 9232130 (Version 1)
Quarter: 2013Q2

REPORT INFORMATION
  Report Type: Report from Study
  Country: CA (occurrence: CA)
  Receive Date: 20130415
  Receipt Date: 20130415
  Transmission Date: 20140414
  Serious: Yes (Other)
  Sender: FDA-Public Use
  Company Number: CA-ABBOTT-13P-028-1065589-00

PATIENT
  Age: 14 Year
  Sex: Female

DRUGS (1)
  1. HUMIRA [Suspect]
     Indication: JUVENILE IDIOPATHIC ARTHRITIS
     Route: 058
     Dates: start: 20070212

REACTIONS (2)
  - Spinal fracture [Not Recovered/Not Resolved]
  - Orthopaedic procedure [Not Recovered/Not Resolved]
